FAERS Safety Report 6037776-6 (Version None)
Quarter: 2009Q1

REPORT INFORMATION
  Report Type: 
  Country: None (occurrence: None)
  Receive Date: 20090114
  Receipt Date: 20090102
  Transmission Date: 20090719
  Serious: Yes (Life-Threatening)
  Sender: FDA-Public Use
  Company Number: 2009S1000238

PATIENT
  Age: 56 Year
  Sex: Male

DRUGS (9)
  1. METFORMIN HCL [Suspect]
     Indication: DIABETES MELLITUS
     Dosage: 100 MG; ORAL
     Route: 048
  2. LOSARTAN POTASSIUM [Suspect]
     Indication: HYPERTENSION
     Dosage: 1 GM; Q8H; ORAL
     Route: 048
  3. AMLODIPINE BESYLATE [Concomitant]
  4. ASPIRIN [Concomitant]
  5. ATORVASTATIN CALCIUM [Concomitant]
  6. BENDROFLUMETHIAZIDE [Concomitant]
  7. DOZAOCIN [Concomitant]
  8. MINOCYCLINE HCL [Concomitant]
  9. SILENAFIL [Concomitant]

REACTIONS (3)
  - HAEMATEMESIS [None]
  - LACTIC ACIDOSIS [None]
  - RENAL FAILURE ACUTE [None]
